FAERS Safety Report 6945362-6 (Version None)
Quarter: 2010Q3

REPORT INFORMATION
  Report Type: 
  Country: None (occurrence: None)
  Receive Date: 20100827
  Receipt Date: 20100819
  Transmission Date: 20110219
  Serious: Yes (Hospitalization, Other)
  Sender: FDA-Public Use
  Company Number: US-JNJFOC-20100701934

PATIENT
  Sex: Female
  Weight: 83.92 kg

DRUGS (16)
  1. LEVAQUIN [Suspect]
     Indication: BRONCHITIS
     Route: 042
  2. LEVAQUIN [Suspect]
     Indication: PNEUMONIA
     Route: 042
  3. LEVAQUIN [Suspect]
     Route: 048
  4. LEVAQUIN [Suspect]
     Route: 048
  5. LEVAQUIN [Suspect]
     Route: 048
  6. LEVAQUIN [Suspect]
     Route: 048
  7. PREDNISONE [Suspect]
     Indication: BRONCHITIS
     Route: 065
  8. PREMPRO [Concomitant]
     Route: 048
  9. OPANA ER [Concomitant]
     Indication: PAIN
     Route: 048
  10. BUMETANIDE [Concomitant]
     Indication: DIURETIC THERAPY
     Route: 048
  11. PROZAC [Concomitant]
     Indication: DEPRESSION
     Route: 048
  12. PRAVASTATIN [Concomitant]
     Indication: BLOOD CHOLESTEROL
     Route: 048
  13. ZETIA [Concomitant]
     Indication: BLOOD CHOLESTEROL
     Route: 048
  14. METOPROLOL [Concomitant]
     Indication: BLOOD PRESSURE
     Route: 048
  15. ALBUTEROL [Concomitant]
     Indication: CHRONIC OBSTRUCTIVE PULMONARY DISEASE
     Route: 055
  16. IPRATROPIUM BROMIDE [Concomitant]
     Indication: CHRONIC OBSTRUCTIVE PULMONARY DISEASE
     Route: 055

REACTIONS (5)
  - ARTHRALGIA [None]
  - ARTHROPATHY [None]
  - MUSCULAR WEAKNESS [None]
  - MUSCULOSKELETAL DISCOMFORT [None]
  - ROTATOR CUFF SYNDROME [None]
